FAERS Safety Report 9932620 (Version 1)
Quarter: 2014Q1

REPORT INFORMATION
  Report Type: Spontaneous
  Country: US (occurrence: US)
  Receive Date: 20140228
  Receipt Date: 20140228
  Transmission Date: 20141002
  Serious: No
  Sender: FDA-Public Use
  Company Number: US-GLAXOSMITHKLINE-A1022856A

PATIENT
  Age: 40 Year
  Sex: Male
  Weight: 86.4 kg

DRUGS (2)
  1. LAMICTAL [Suspect]
     Indication: BIPOLAR DISORDER
     Dosage: 200MG PER DAY
     Route: 048
     Dates: start: 20080529
  2. KLONOPIN [Concomitant]

REACTIONS (2)
  - Bruxism [Unknown]
  - Vertigo [Recovered/Resolved]
